FAERS Safety Report 5559864-0 (Version None)
Quarter: 2007Q4

REPORT INFORMATION
  Report Type: 
  Country: None (occurrence: None)
  Receive Date: 20071214
  Receipt Date: 20071017
  Transmission Date: 20080405
  Serious: No
  Sender: FDA-Public Use
  Company Number: US-ABBOTT-07P-163-0421425-00

PATIENT
  Sex: Female
  Weight: 47.67 kg

DRUGS (4)
  1. HUMIRA [Suspect]
     Indication: CROHN'S DISEASE
     Route: 058
     Dates: start: 20070918, end: 20071002
  2. HUMIRA [Suspect]
     Route: 058
     Dates: start: 20071002, end: 20071016
  3. HUMIRA [Suspect]
     Dosage: LOT #/ESP NOT AVAILABLE - CONSUMER AT WORK
     Route: 058
     Dates: start: 20071016
  4. MARVELON [Concomitant]
     Indication: CONTRACEPTION
     Route: 048

REACTIONS (1)
  - ACCIDENTAL EXPOSURE [None]
